APPROVED DRUG PRODUCT: ISONIAZID
Active Ingredient: ISONIAZID
Strength: 100MG/ML
Dosage Form/Route: INJECTABLE;INJECTION
Application: A040648 | Product #001
Applicant: SANDOZ INC
Approved: Jul 5, 2005 | RLD: No | RS: Yes | Type: RX